FAERS Safety Report 20085461 (Version 1)
Quarter: 2021Q4

REPORT INFORMATION
  Report Type: Spontaneous
  Country: PT (occurrence: PT)
  Receive Date: 20211118
  Receipt Date: 20211118
  Transmission Date: 20220303
  Serious: Yes (Hospitalization)
  Sender: FDA-Public Use
  Company Number: PT-MYLANLABS-2021M1085244

PATIENT
  Age: 79 Year
  Sex: Female

DRUGS (3)
  1. ACETAMINOPHEN [Interacting]
     Active Substance: ACETAMINOPHEN
     Indication: Procedural pain
     Dosage: 4 GRAM, QD
     Route: 065
  2. FLUCLOXACILLIN [Interacting]
     Active Substance: FLUCLOXACILLIN
     Indication: Staphylococcal infection
     Dosage: 12 GRAM, QD
     Route: 065
  3. FLUCLOXACILLIN [Interacting]
     Active Substance: FLUCLOXACILLIN
     Indication: Intervertebral discitis

REACTIONS (3)
  - Drug interaction [Unknown]
  - Metabolic acidosis [Unknown]
  - Respiratory fatigue [Unknown]
